FAERS Safety Report 9409964 (Version 1)
Quarter: 2013Q2

REPORT INFORMATION
  Report Type: Spontaneous
  Country: ES (occurrence: None)
  Receive Date: 20130607
  Receipt Date: 20130607
  Transmission Date: 20140414
  Serious: Yes (Other)
  Sender: FDA-Public Use
  Company Number: SYM-2013-00553

PATIENT
  Age: 58 Year
  Sex: Male

DRUGS (3)
  1. FLUOROURACIL (FLUOROURACIL) (FLUOROURACIL) [Suspect]
     Indication: ADENOCARCINOMA OF COLON
  2. IRINOTECAN (IRINOTECAN) (IRINOTECAN) [Concomitant]
  3. BEVACIZUMAB [Concomitant]

REACTIONS (3)
  - Hyperammonaemic encephalopathy [None]
  - Renal failure acute [None]
  - Blood pressure diastolic decreased [None]
